FAERS Safety Report 25425597 (Version 1)
Quarter: 2025Q2

REPORT INFORMATION
  Report Type: Report from Study
  Country: US (occurrence: US)
  Receive Date: 20250611
  Receipt Date: 20250611
  Transmission Date: 20250716
  Serious: Yes (Hospitalization)
  Sender: ABBVIE
  Company Number: US-ABBVIE-6313770

PATIENT
  Age: 59 Year
  Sex: Female
  Weight: 46.266 kg

DRUGS (4)
  1. VYALEV [Suspect]
     Active Substance: FOSCARBIDOPA\FOSLEVODOPA
     Indication: Parkinson^s disease
     Route: 058
     Dates: start: 20250522
  2. INBRIJA [Concomitant]
     Active Substance: LEVODOPA
     Indication: Product used for unknown indication
  3. SINEMET [Concomitant]
     Active Substance: CARBIDOPA\LEVODOPA
     Indication: Product used for unknown indication
  4. SINEMET CR [Concomitant]
     Active Substance: CARBIDOPA\LEVODOPA
     Indication: Product used for unknown indication

REACTIONS (6)
  - Micturition frequency decreased [Not Recovered/Not Resolved]
  - Infusion site warmth [Recovered/Resolved]
  - Infusion site infection [Recovered/Resolved]
  - Infusion site erythema [Recovered/Resolved]
  - Constipation [Not Recovered/Not Resolved]
  - Infusion site papule [Recovered/Resolved]

NARRATIVE: CASE EVENT DATE: 20250529
